FAERS Safety Report 10081151 (Version 2)
Quarter: 2014Q2

REPORT INFORMATION
  Report Type: Report from Study
  Country: CA (occurrence: CA)
  Receive Date: 20140416
  Receipt Date: 20140416
  Transmission Date: 20141212
  Serious: Yes (Death)
  Sender: FDA-Public Use
  Company Number: PHHY2014CA004201

PATIENT
  Age: 82 Year
  Sex: Female

DRUGS (2)
  1. SANDOSTATIN LAR [Suspect]
     Indication: GASTROINTESTINAL ANGIODYSPLASIA
     Dosage: 20 MG, QMO
     Route: 030
     Dates: start: 20131220
  2. SANDOSTATIN LAR [Suspect]
     Indication: OFF LABEL USE
     Dosage: 10 MG, QMO
     Route: 030
     Dates: end: 20140312

REACTIONS (4)
  - Death [Fatal]
  - Blood pressure diastolic decreased [Unknown]
  - Nasal congestion [Unknown]
  - Rash generalised [Recovered/Resolved]
